FAERS Safety Report 5832264-1 (Version None)
Quarter: 2008Q3

REPORT INFORMATION
  Report Type: 
  Country: None (occurrence: None)
  Receive Date: 20080804
  Receipt Date: 20080721
  Transmission Date: 20090109
  Serious: Yes (Hospitalization)
  Sender: FDA-Public Use
  Company Number: AU-JNJFOC-20080800412

PATIENT
  Sex: Female

DRUGS (3)
  1. TRAMADOL HYDROCHLORIDE [Suspect]
     Indication: HEADACHE
     Route: 065
  2. METOCLOPRAMIDE [Concomitant]
  3. PREDNISOLONE [Concomitant]

REACTIONS (4)
  - FORMICATION [None]
  - GRAND MAL CONVULSION [None]
  - HALLUCINATION, VISUAL [None]
  - HYPOAESTHESIA [None]
